FAERS Safety Report 4713359-2 (Version None)
Quarter: 2005Q3

REPORT INFORMATION
  Report Type: 
  Country: None (occurrence: None)
  Receive Date: 20050701
  Receipt Date: 20050104
  Transmission Date: 20060218
  Serious: Yes (Other)
  Sender: FDA-Public Use
  Company Number: US-2004-035412

PATIENT
  Age: 42 Year
  Sex: Female

DRUGS (4)
  1. YASMIN [Suspect]
     Indication: MENSTRUATION IRREGULAR
     Dosage: 1 TAB(S), 1X/DAY, ORAL
     Route: 048
     Dates: start: 20030701, end: 20040901
  2. YASMIN [Suspect]
     Indication: MENSTRUATION IRREGULAR
     Dosage: 1 TAB(S), 1X/DAY, ORAL
     Route: 048
     Dates: start: 20050101
  3. STRATTERA [Concomitant]
  4. ORTHO TRI-CYCLEN LO (NORGESTIMATE) [Concomitant]

REACTIONS (2)
  - ACNE [None]
  - ALOPECIA [None]
